FAERS Safety Report 7580628-0 (Version None)
Quarter: 2011Q2

REPORT INFORMATION
  Report Type: 
  Country: None (occurrence: None)
  Receive Date: 20110629
  Receipt Date: 20110620
  Transmission Date: 20111010
  Serious: Yes (Hospitalization, Other)
  Sender: FDA-Public Use
  Company Number: US-ALEXION PHARMACEUTICALS INC.-A201100157

PATIENT
  Sex: Male

DRUGS (4)
  1. SOLIRIS [Suspect]
     Dosage: 900 MG, Q2W
     Route: 042
  2. SOLIRIS [Suspect]
     Indication: PAROXYSMAL NOCTURNAL HAEMOGLOBINURIA
     Dosage: 900 MG, Q2W
     Route: 042
     Dates: start: 20100701
  3. ALLEGRA [Concomitant]
     Indication: PROPHYLAXIS
  4. VITAMINS NOS [Concomitant]
     Dosage: UNK
     Route: 048

REACTIONS (4)
  - CONDITION AGGRAVATED [None]
  - BONE MARROW TRANSPLANT [None]
  - ACUTE GRAFT VERSUS HOST DISEASE [None]
  - BLOOD PRODUCT TRANSFUSION DEPENDENT [None]
